FAERS Safety Report 11403600 (Version 1)
Quarter: 2015Q3

REPORT INFORMATION
  Report Type: Spontaneous
  Country: US (occurrence: None)
  Receive Date: 20150807
  Receipt Date: 20150807
  Transmission Date: 20151125
  Serious: No
  Sender: FDA-Public Use
  Company Number: 2015FE02376

PATIENT
  Sex: Female

DRUGS (2)
  1. PREPOPIK [Suspect]
     Active Substance: ANHYDROUS CITRIC ACID\MAGNESIUM OXIDE\SODIUM PICOSULFATE
     Indication: COLONOSCOPY
     Dosage: SPLIT-DOSE REGIMEN, ORAL
     Route: 048
  2. PREPOPIK [Suspect]
     Active Substance: ANHYDROUS CITRIC ACID\MAGNESIUM OXIDE\SODIUM PICOSULFATE
     Indication: BOWEL PREPARATION
     Dosage: SPLIT-DOSE REGIMEN, ORAL
     Route: 048

REACTIONS (8)
  - Dizziness [None]
  - Drug ineffective [None]
  - Headache [None]
  - Abdominal distension [None]
  - Vomiting [None]
  - Retching [None]
  - Product reconstitution issue [None]
  - Nausea [None]
